FAERS Safety Report 13078230 (Version 4)
Quarter: 2017Q1

REPORT INFORMATION
  Report Type: Report from Study
  Country: US (occurrence: US)
  Receive Date: 20170102
  Receipt Date: 20170227
  Transmission Date: 20170428
  Serious: Yes (Other)
  Sender: FDA-Public Use
  Company Number: US-AMGEN-USASP2016184101

PATIENT
  Age: 59 Year
  Sex: Male

DRUGS (1)
  1. ENBREL [Suspect]
     Active Substance: ETANERCEPT
     Indication: RHEUMATOID ARTHRITIS
     Dosage: 50 MG, QWK
     Route: 065
     Dates: start: 20161122

REACTIONS (8)
  - Rheumatoid arthritis [Not Recovered/Not Resolved]
  - Urine abnormality [Unknown]
  - Gait disturbance [Unknown]
  - Headache [Not Recovered/Not Resolved]
  - Injection site swelling [Recovering/Resolving]
  - Injection site hypoaesthesia [Recovering/Resolving]
  - Malaise [Unknown]
  - Injection site erythema [Recovering/Resolving]

NARRATIVE: CASE EVENT DATE: 2016
